FAERS Safety Report 17223516 (Version 1)
Quarter: 2020Q1

REPORT INFORMATION
  Report Type: Spontaneous
  Country: GB (occurrence: TH)
  Receive Date: 20200102
  Receipt Date: 20200102
  Transmission Date: 20200409
  Serious: Yes (Other)
  Sender: FDA-Public Use
  Company Number: GB-TEVA-2019-GB-1160303

PATIENT
  Sex: Male

DRUGS (1)
  1. ABACAVIR/LAMIVUDIN LUPIN 600 MG / 300 MG FILM COATED TABLETS [Suspect]
     Active Substance: ABACAVIR\LAMIVUDINE
     Indication: HIV TEST POSITIVE
     Dosage: 1 DOSAGE FORM (600/300 MG), QD (1 TABLET PER NIGHT) FOR ACTIVE INGREDIENT LAMIVUDINE THE STRENGTH IS
     Route: 065
     Dates: start: 2014

REACTIONS (2)
  - Fall [Unknown]
  - Syncope [Unknown]
